FAERS Safety Report 18932168 (Version 1)
Quarter: 2021Q1

REPORT INFORMATION
  Report Type: Other
  Country: CA (occurrence: CA)
  Receive Date: 20210223
  Receipt Date: 20210223
  Transmission Date: 20210420
  Serious: Yes (Other)
  Sender: FDA-Public Use
  Company Number: CA-CELLTRION INC.-2021CA002124

PATIENT

DRUGS (16)
  1. RITUXIMAB (UNKNOWN) [Suspect]
     Active Substance: RITUXIMAB
     Indication: INFLAMMATORY PSEUDOTUMOUR
     Dosage: 711.0 MILLIGRAM, 1 EVERY 1 WEEK (DOSAGE FORM: SOLUTION FOR INFUSION)
     Route: 042
  2. MYCOPHENOLATE MOFETIL. [Suspect]
     Active Substance: MYCOPHENOLATE MOFETIL
     Dosage: 2 EVERY 1 DAYS (THERAPY DURATION: ?60.0)
     Route: 048
  3. BENADRYL [Concomitant]
     Active Substance: DIPHENHYDRAMINE HYDROCHLORIDE
     Indication: PREMEDICATION
     Dosage: 50.0 MILLIGRAM
     Route: 048
  4. FROVATRIPTAN. [Concomitant]
     Active Substance: FROVATRIPTAN
     Indication: MIGRAINE
     Dosage: 2.5 MILLIGRAM
     Route: 065
  5. PREDNISONE. [Suspect]
     Active Substance: PREDNISONE
     Indication: INFLAMMATORY PSEUDOTUMOUR
     Dosage: 20.0 MILLIGRAM, 1 EVERY 1 DAYS
     Route: 065
  6. ADVIL [Concomitant]
     Active Substance: IBUPROFEN
  7. DROSPIRENONE;ETHINYLESTRADIOL [Concomitant]
     Active Substance: DROSPIRENONE\ETHINYL ESTRADIOL
  8. METHYLPREDNISOLONE SODIUM SUCCINATE. [Concomitant]
     Active Substance: METHYLPREDNISOLONE SODIUM SUCCINATE
     Indication: ANTIFUNGAL PROPHYLAXIS
     Dosage: 100.0 MILLIGRAM
     Route: 042
  9. RITUXIMAB (UNKNOWN) [Suspect]
     Active Substance: RITUXIMAB
     Dosage: 700.0 MILLIGRAM, 1 EVERY 1 WEEK
     Route: 042
  10. AMITRIPTYLINE [Concomitant]
     Active Substance: AMITRIPTYLINE
     Dosage: 50.0 MILLIGRAM, 1 EVERY 1 DAYS
     Route: 065
  11. SEPTRA [Concomitant]
     Active Substance: SULFAMETHOXAZOLE\TRIMETHOPRIM
     Indication: ANTIFUNGAL PROPHYLAXIS
     Dosage: 3 EVERY 1 DAYS
     Route: 065
  12. MYCOPHENOLATE MOFETIL. [Suspect]
     Active Substance: MYCOPHENOLATE MOFETIL
     Indication: INFLAMMATORY PSEUDOTUMOUR
     Dosage: 1.0 GRAM, 2 EVERY 1 DAY
     Route: 048
  13. RITUXIMAB (UNKNOWN) [Suspect]
     Active Substance: RITUXIMAB
     Indication: VASCULITIS
     Dosage: 711.0 MILLIGRAM, 1 EVERY 1 WEEK (DOSAGE FORM: SOLUTION FOR INFUSION)
     Route: 042
  14. VITAMIN B2 [Concomitant]
     Active Substance: RIBOFLAVIN
  15. TYLENOL [Concomitant]
     Active Substance: ACETAMINOPHEN
     Dosage: 600.0 MILLIGRAM
     Route: 048
  16. VERAPAMIL [Concomitant]
     Active Substance: VERAPAMIL HYDROCHLORIDE
     Dosage: 120.0 MILLIGRAM, 3 EVERY 1 DAYS
     Route: 065

REACTIONS (11)
  - Eye inflammation [Recovered/Resolved]
  - Intentional product use issue [Recovered/Resolved]
  - Blood pressure diastolic increased [Recovered/Resolved]
  - Eye pain [Recovered/Resolved]
  - Infusion related reaction [Recovered/Resolved]
  - Blood pressure fluctuation [Recovered/Resolved]
  - Off label use [Recovered/Resolved]
  - Diplopia [Recovered/Resolved]
  - Heart rate increased [Recovered/Resolved]
  - Eye haemorrhage [Recovered/Resolved]
  - Eye swelling [Recovered/Resolved]
